FAERS Safety Report 16918750 (Version 8)
Quarter: 2020Q2

REPORT INFORMATION
  Report Type: Report from Study
  Country: CA (occurrence: CA)
  Receive Date: 20191015
  Receipt Date: 20200415
  Transmission Date: 20200713
  Serious: Yes (Hospitalization)
  Sender: FDA-Public Use
  Company Number: CA-EISAI MEDICAL RESEARCH-EC-2019-063596

PATIENT
  Age: 79 Year
  Sex: Female
  Weight: 62.81 kg

DRUGS (19)
  1. ARTHRITIS PAIN FORMULA [Concomitant]
     Dates: start: 20190219
  2. LENVATINIB [Suspect]
     Active Substance: LENVATINIB
     Dosage: DOSE STARTING AT 20 MG, FLUCTUATED DOSES
     Route: 048
     Dates: start: 20190403, end: 20190929
  3. PEMBROLIZUMAB. [Suspect]
     Active Substance: PEMBROLIZUMAB
     Indication: ENDOMETRIAL CANCER
     Route: 041
     Dates: start: 20190321, end: 20190321
  4. VITAMIN D [Concomitant]
     Active Substance: VITAMIN D NOS
     Dates: start: 20190313
  5. ANGLO-FRENCH LABS ARTECHOL [Concomitant]
     Dates: start: 20190219, end: 20190312
  6. EMOLAX [Concomitant]
     Dates: start: 201809, end: 20190312
  7. COLLAGEN [Concomitant]
     Active Substance: COLLAGEN
     Dates: start: 201901, end: 20190312
  8. VENLAFAXINE [Concomitant]
     Active Substance: VENLAFAXINE HYDROCHLORIDE
     Dates: start: 200901
  9. DOCUSATE SODIUM. [Concomitant]
     Active Substance: DOCUSATE SODIUM
     Dates: start: 20190313
  10. ZANTAC [Concomitant]
     Active Substance: RANITIDINE HYDROCHLORIDE
     Dates: start: 20190219, end: 20190312
  11. SENOKOT [Concomitant]
     Active Substance: SENNOSIDES
     Dates: start: 199001
  12. PANTOLOC [Concomitant]
     Active Substance: PANTOPRAZOLE SODIUM
     Dates: start: 20190313, end: 20190830
  13. LENVATINIB [Suspect]
     Active Substance: LENVATINIB
     Indication: ENDOMETRIAL CANCER
     Route: 048
     Dates: start: 20190321, end: 20190402
  14. ASCORBIC ACID. [Concomitant]
     Active Substance: ASCORBIC ACID
     Dates: start: 201209, end: 20190312
  15. CALCIUM/MAGNESIUM/VITAMIN D [Concomitant]
     Dates: start: 20190219, end: 20190312
  16. LENVATINIB [Suspect]
     Active Substance: LENVATINIB
     Route: 048
     Dates: start: 20191010
  17. PEMBROLIZUMAB. [Suspect]
     Active Substance: PEMBROLIZUMAB
     Route: 041
     Dates: start: 20190410
  18. CLONAZEPAM. [Concomitant]
     Active Substance: CLONAZEPAM
     Dates: start: 200901
  19. CALCIUM [Concomitant]
     Active Substance: CALCIUM
     Dates: start: 20190219, end: 20190312

REACTIONS (1)
  - Decreased appetite [Recovered/Resolved]

NARRATIVE: CASE EVENT DATE: 20190324
